FAERS Safety Report 6169777-1 (Version None)
Quarter: 2009Q2

REPORT INFORMATION
  Report Type: 
  Country: None (occurrence: None)
  Receive Date: 20090428
  Receipt Date: 20090422
  Transmission Date: 20091009
  Serious: Yes (Death)
  Sender: FDA-Public Use
  Company Number: IT-AMGEN-UK327225

PATIENT
  Sex: Male
  Weight: 56 kg

DRUGS (14)
  1. NEULASTA [Suspect]
     Indication: DRUG USE FOR UNKNOWN INDICATION
     Route: 065
     Dates: start: 20081105, end: 20081116
  2. TRAMADOL HCL [Concomitant]
     Route: 065
  3. LEVOFLOXACIN [Concomitant]
     Route: 048
     Dates: start: 20081203, end: 20081206
  4. ANTRA [Concomitant]
     Route: 048
     Dates: start: 20081206, end: 20081208
  5. DELTACORTENE [Concomitant]
     Route: 048
     Dates: start: 20081105, end: 20081208
  6. LASIX [Concomitant]
     Route: 048
     Dates: start: 20081202, end: 20081208
  7. LASIX [Concomitant]
     Route: 065
  8. TRANEXAMIC ACID [Concomitant]
     Route: 048
     Dates: start: 20081201, end: 20081208
  9. SPORANOX [Concomitant]
     Route: 048
     Dates: start: 20081203, end: 20081208
  10. DILATREND [Concomitant]
     Route: 048
     Dates: start: 20081204, end: 20081208
  11. DILATREND [Concomitant]
     Route: 065
  12. TRIATEC [Concomitant]
     Route: 048
     Dates: end: 20081208
  13. CEFIXIME CHEWABLE [Concomitant]
     Route: 048
     Dates: start: 20081118, end: 20081203
  14. ZYLORIC [Concomitant]
     Route: 048
     Dates: start: 20081203, end: 20081208

REACTIONS (5)
  - CARDIAC DISORDER [None]
  - HAEMORRHAGE [None]
  - HYPOXIA [None]
  - PYREXIA [None]
  - SUDDEN DEATH [None]
